FAERS Safety Report 9739225 (Version 4)
Quarter: 2014Q1

REPORT INFORMATION
  Report Type: Report from Study
  Country: US (occurrence: US)
  Receive Date: 20131209
  Receipt Date: 20140109
  Transmission Date: 20141002
  Serious: Yes (Hospitalization)
  Sender: FDA-Public Use
  Company Number: US-ROCHE-1309788

PATIENT
  Age: 84 Year
  Sex: Male
  Weight: 70.82 kg

DRUGS (9)
  1. BEVACIZUMAB [Suspect]
     Indication: LUNG CARCINOMA CELL TYPE UNSPECIFIED STAGE IV
     Dosage: DATE OF MOST RECENT DOSE OF BEVACIZUMAB PRIOR TO SAE: 11/NOV/2013, CYCLE 8
     Route: 042
     Dates: start: 20130610
  2. PEMETREXED [Suspect]
     Indication: LUNG CARCINOMA CELL TYPE UNSPECIFIED STAGE IV
     Dosage: DATE OF MOST RECENT DOSE OF PEMETREXED PRIOR TO SAE: 11/NOV/2013, CYCLE 8
     Route: 042
     Dates: start: 20130610
  3. CARBOPLATIN [Suspect]
     Indication: LUNG CARCINOMA CELL TYPE UNSPECIFIED STAGE IV
     Dosage: DATE OF MOST RECENT DOSE OF CARBOPLATIN PRIOR TO SAE: 30/SEP/2013, CYCLE 4  DOSE: 5 AUC
     Route: 042
     Dates: start: 20130610
  4. RANITIDINE [Concomitant]
     Indication: GASTROOESOPHAGEAL REFLUX DISEASE
     Route: 065
     Dates: start: 201304
  5. DEXILANT [Concomitant]
     Indication: GASTROOESOPHAGEAL REFLUX DISEASE
     Route: 065
     Dates: start: 201304
  6. DULCOLAX (BISACODYL) [Concomitant]
     Indication: CONSTIPATION
     Route: 065
     Dates: start: 201305
  7. COMPAZINE [Concomitant]
     Indication: NAUSEA
     Route: 048
     Dates: start: 201306
  8. MILK OF MAGNESIA [Concomitant]
     Indication: CONSTIPATION
     Route: 065
     Dates: start: 1983
  9. FLOMAX (UNITED STATES) [Concomitant]
     Indication: PROSTATOMEGALY
     Route: 048

REACTIONS (2)
  - Spinal cord ischaemia [Recovered/Resolved]
  - Confusional state [Recovered/Resolved]
